FAERS Safety Report 15520042 (Version 1)
Quarter: 2018Q4

REPORT INFORMATION
  Report Type: Report from Study
  Country: US (occurrence: US)
  Receive Date: 20181017
  Receipt Date: 20181017
  Transmission Date: 20190205
  Serious: No
  Sender: FDA-Public Use
  Company Number: US-AMGEN-USASL2018102989

PATIENT
  Age: 56 Year
  Sex: Female
  Weight: 92.63 kg

DRUGS (1)
  1. REPATHA [Suspect]
     Active Substance: EVOLOCUMAB
     Indication: LIPIDS ABNORMAL
     Dosage: 420 MG/3.5 ML, QMO
     Route: 065
     Dates: start: 20180322

REACTIONS (1)
  - Injection site mass [Unknown]
